FAERS Safety Report 16872512 (Version 6)
Quarter: 2020Q2

REPORT INFORMATION
  Report Type: Spontaneous
  Country: DE (occurrence: DE)
  Receive Date: 20191001
  Receipt Date: 20200505
  Transmission Date: 20200713
  Serious: Yes (Other)
  Sender: FDA-Public Use
  Company Number: DE-AUROBINDO-AUR-APL-2019-062369

PATIENT
  Age: 31 Year
  Sex: Female
  Weight: 152 kg

DRUGS (14)
  1. HYDROMORPHONE [Concomitant]
     Active Substance: HYDROMORPHONE
     Indication: PAIN
     Dosage: UNK
     Route: 048
     Dates: start: 20190305
  2. RAMIPRIL 5MG [Suspect]
     Active Substance: RAMIPRIL
     Indication: HYPERTONIA
     Dosage: 5 MILLIGRAM
     Route: 048
     Dates: start: 201809
  3. AMOXICILLIN+CLAVULANIC ACID 500/125MG [Suspect]
     Active Substance: AMOXICILLIN\CLAVULANIC ACID
     Indication: SINUSITIS
     Dosage: 3 DOSAGE FORM, 3 TIMES A DAY (1 DOSAGE FORM, ONCE A DAY)
     Route: 048
     Dates: start: 20190913
  4. FENISTIL [Concomitant]
     Active Substance: DIMETHINDENE
     Indication: HYPERSENSITIVITY
     Dosage: 2 DOSAGE FORM, ONCE A DAY (0-0-0-2)
     Route: 048
  5. CELESTAMINE [Concomitant]
     Active Substance: BETAMETHASONE\DEXCHLORPHENIRAMINE MALEATE
     Indication: HYPERSENSITIVITY
     Dosage: UNK, IF NEEDED (AS NECESSARY)
     Route: 048
  6. ASTONIN H [Concomitant]
     Indication: PRIMARY ADRENAL INSUFFICIENCY
     Dosage: 1 DOSAGE FORM, TWO TIMES A DAY (1-1-0-0)
     Route: 048
     Dates: start: 201708
  7. MEDIKINET [Concomitant]
     Active Substance: METHYLPHENIDATE
     Indication: ATTENTION DEFICIT HYPERACTIVITY DISORDER
     Dosage: 4 DOSAGE FORM, 3 TIMES A DAY (2-1-1-0)
     Route: 048
     Dates: start: 201310
  8. CIMZIA [Concomitant]
     Active Substance: CERTOLIZUMAB PEGOL
     Indication: RHEUMATOID ARTHRITIS
     Dosage: UNK, ONCE A DAY, 14 DAILY
     Route: 065
  9. DESLORATADINA [Concomitant]
     Active Substance: DESLORATADINE
     Indication: HYPERSENSITIVITY
     Dosage: 1 DOSAGE FORM, ONCE A DAY (1-0-0-0 )
     Route: 048
     Dates: start: 20190426
  10. EPINEPHRINE. [Concomitant]
     Active Substance: EPINEPHRINE
     Indication: HYPERSENSITIVITY
     Dosage: UNK, IF NEEDED (1 AS NECESSARY)
     Route: 065
  11. METOPROLOL. [Concomitant]
     Active Substance: METOPROLOL
     Indication: HYPERTENSION
     Dosage: UNK
     Route: 048
     Dates: start: 2017
  12. SALBUHEXAL [Concomitant]
     Active Substance: ALBUTEROL
     Indication: ASTHMA
     Dosage: UNK, 2 PRESSURES
     Dates: start: 20190814
  13. FENISTIL [Concomitant]
     Active Substance: DIMETHINDENE
     Dosage: IF NEEDED
     Route: 048
  14. HYDROCORTISONE. [Concomitant]
     Active Substance: HYDROCORTISONE
     Indication: HORMONE REPLACEMENT THERAPY
     Dosage: 10 MILLIGRAM
     Route: 048
     Dates: start: 201705

REACTIONS (8)
  - Vulvovaginal mycotic infection [Recovered/Resolved]
  - Syncope [Recovered/Resolved]
  - Product use in unapproved indication [Unknown]
  - Diarrhoea [Not Recovered/Not Resolved]
  - Nausea [Recovering/Resolving]
  - Abdominal pain upper [Recovering/Resolving]
  - Cystitis [Recovering/Resolving]
  - Fatigue [Recovering/Resolving]

NARRATIVE: CASE EVENT DATE: 20190916
